FAERS Safety Report 4899401-7 (Version None)
Quarter: 2006Q1

REPORT INFORMATION
  Report Type: 
  Country: None (occurrence: None)
  Receive Date: 20060131
  Receipt Date: 20060120
  Transmission Date: 20060701
  Serious: Yes (Death)
  Sender: FDA-Public Use
  Company Number: DE-2006-000508

PATIENT
  Age: 67 Year
  Sex: Male
  Weight: 67 kg

DRUGS (14)
  1. CAMPATH [Suspect]
     Indication: CHRONIC LYMPHOCYTIC LEUKAEMIA
     Dosage: SEE IMAGE, INTRAVENOUS
     Route: 042
     Dates: start: 20051010, end: 20051014
  2. CAMPATH [Suspect]
     Indication: CHRONIC LYMPHOCYTIC LEUKAEMIA
     Dosage: SEE IMAGE, INTRAVENOUS
     Route: 042
     Dates: start: 20051130, end: 20051130
  3. CAMPATH [Suspect]
     Indication: CHRONIC LYMPHOCYTIC LEUKAEMIA
     Dosage: SEE IMAGE, INTRAVENOUS
     Route: 042
     Dates: start: 20051017, end: 20051209
  4. ANTIHISTAMINES [Concomitant]
  5. CORTICOSTEROIDS [Concomitant]
  6. CO-TRIMOXAZOLE (CO-TRIMOXAZOLE) [Concomitant]
  7. FAMCICLOVIR (FAMCICLOVIR) [Concomitant]
  8. NEUPOGEN [Concomitant]
  9. METOPROLOL (METOPROLOL) [Concomitant]
  10. TRI-THIAZID [Concomitant]
  11. GLYBURIDE [Concomitant]
  12. ALLO-300 [Concomitant]
  13. COLCHYSAT (COLCHICUM AUTUMNALE TINCTURE) [Concomitant]
  14. ACETYLSALICYLIC ACID SRT [Concomitant]

REACTIONS (12)
  - ANAEMIA [None]
  - AORTIC ARTERIOSCLEROSIS [None]
  - B-CELL SMALL LYMPHOCYTIC LYMPHOMA [None]
  - CAROTID ARTERY DISEASE [None]
  - CHILLS [None]
  - GENERAL PHYSICAL HEALTH DETERIORATION [None]
  - HAEMATOTOXICITY [None]
  - LYMPHOMA [None]
  - PYREXIA [None]
  - RESTLESSNESS [None]
  - SPLEEN DISORDER [None]
  - VASCULAR CALCIFICATION [None]
